FAERS Safety Report 8004811-5 (Version None)
Quarter: 2011Q4

REPORT INFORMATION
  Report Type: 
  Country: None (occurrence: None)
  Receive Date: 20111223
  Receipt Date: 20111213
  Transmission Date: 20120403
  Serious: Yes (Hospitalization)
  Sender: FDA-Public Use
  Company Number: IT-BRISTOL-MYERS SQUIBB COMPANY-16295065

PATIENT
  Age: 55 Year
  Sex: Male

DRUGS (3)
  1. ASPIRIN [Concomitant]
     Route: 048
     Dates: start: 20060713, end: 20111018
  2. FENOFIBRATE [Concomitant]
     Route: 048
     Dates: start: 20081201, end: 20111018
  3. ONGLYZA [Suspect]
     Indication: TYPE 2 DIABETES MELLITUS
     Dosage: FILM COATED TABS 1DF:1 UNIT
     Route: 048
     Dates: start: 20110524, end: 20111018

REACTIONS (2)
  - ATRIOVENTRICULAR BLOCK [None]
  - BRADYCARDIA [None]
